FAERS Safety Report 18621270 (Version 1)
Quarter: 2020Q4

REPORT INFORMATION
  Report Type: Spontaneous
  Country: US (occurrence: US)
  Receive Date: 20201215
  Receipt Date: 20201215
  Transmission Date: 20210114
  Serious: No
  Sender: FDA-Public Use
  Company Number: US-ABBVIE-20K-163-3301584-00

PATIENT
  Sex: Female

DRUGS (2)
  1. EPLERENONE. [Suspect]
     Active Substance: EPLERENONE
     Indication: PRODUCT USED FOR UNKNOWN INDICATION
     Route: 065
  2. TRILIPIX [Suspect]
     Active Substance: FENOFIBRIC ACID
     Indication: PRODUCT USED FOR UNKNOWN INDICATION
     Route: 048

REACTIONS (8)
  - Pain [Unknown]
  - Hyperkalaemia [Unknown]
  - Poor quality sleep [Unknown]
  - Blood glucose decreased [Unknown]
  - Constipation [Unknown]
  - Weight increased [Unknown]
  - Pain in extremity [Unknown]
  - Oedema peripheral [Unknown]
